FAERS Safety Report 10415823 (Version 2)
Quarter: 2014Q4

REPORT INFORMATION
  Report Type: Spontaneous
  Country: US (occurrence: US)
  Receive Date: 20140828
  Receipt Date: 20141030
  Transmission Date: 20150528
  Serious: No
  Sender: FDA-Public Use
  Company Number: US-PFIZER INC-2014236049

PATIENT
  Age: 41 Year
  Sex: Female

DRUGS (2)
  1. METHOTREXATE [Concomitant]
     Active Substance: METHOTREXATE
     Dosage: UNK
  2. XELJANZ [Suspect]
     Active Substance: TOFACITINIB CITRATE
     Indication: RHEUMATOID ARTHRITIS
     Dosage: 5 MG, 2X/DAY
     Route: 048
     Dates: start: 201401

REACTIONS (6)
  - Emotional distress [Unknown]
  - Lip dry [Unknown]
  - Rhinorrhoea [Unknown]
  - Cough [Unknown]
  - Oral herpes [Unknown]
  - Chapped lips [Unknown]

NARRATIVE: CASE EVENT DATE: 201401
